FAERS Safety Report 21089409 (Version 2)
Quarter: 2022Q3

REPORT INFORMATION
  Report Type: Spontaneous
  Country: PL (occurrence: PL)
  Receive Date: 20220715
  Receipt Date: 20220928
  Transmission Date: 20221027
  Serious: Yes (Hospitalization, Other)
  Sender: FDA-Public Use
  Company Number: PL-002147023-NVSC2022PL119672

PATIENT
  Age: 74 Year
  Sex: Male

DRUGS (6)
  1. GENTAMICIN SULFATE [Suspect]
     Active Substance: GENTAMICIN SULFATE
     Dosage: UNK
  2. TRAMADOL HYDROCHLORIDE [Suspect]
     Active Substance: TRAMADOL HYDROCHLORIDE
  3. ENOXAPARIN SODIUM [Suspect]
     Active Substance: ENOXAPARIN SODIUM
     Dosage: UNK
  4. OXYCODONE [Suspect]
     Active Substance: OXYCODONE
     Dosage: UNK
  5. PSEUDOEPHEDRINE [Suspect]
     Active Substance: PSEUDOEPHEDRINE
     Dosage: UNK
  6. BUPIVACAINE [Suspect]
     Active Substance: BUPIVACAINE
     Dosage: UNK

REACTIONS (5)
  - Symmetrical drug-related intertriginous and flexural exanthema [Recovered/Resolved]
  - Skin lesion [Recovered/Resolved]
  - Rash erythematous [Recovered/Resolved]
  - Erythema [Recovered/Resolved]
  - Papule [Recovered/Resolved]
